FAERS Safety Report 7791676-X (Version None)
Quarter: 2011Q4

REPORT INFORMATION
  Report Type: 
  Country: None (occurrence: None)
  Receive Date: 20111003
  Receipt Date: 20110926
  Transmission Date: 20120403
  Serious: Yes (Other)
  Sender: FDA-Public Use
  Company Number: KR-JNJFOC-20110911748

PATIENT
  Age: 84 Year
  Sex: Female

DRUGS (3)
  1. GALANTAMINE HYDROBROMIDE [Suspect]
     Route: 048
     Dates: start: 20110923
  2. IXEL [Concomitant]
     Indication: DEPRESSION
     Route: 048
     Dates: start: 20110923
  3. GALANTAMINE HYDROBROMIDE [Suspect]
     Indication: DEMENTIA
     Route: 048

REACTIONS (1)
  - URINE OUTPUT DECREASED [None]
